FAERS Safety Report 7560794-3 (Version None)
Quarter: 2011Q2

REPORT INFORMATION
  Report Type: 
  Country: None (occurrence: None)
  Receive Date: 20110621
  Receipt Date: 20110124
  Transmission Date: 20111010
  Serious: No
  Sender: FDA-Public Use
  Company Number: US-ASTRAZENECA-2011SE03889

PATIENT
  Age: 69 Year
  Sex: Female

DRUGS (6)
  1. ATACAND [Suspect]
     Indication: BLOOD PRESSURE
     Route: 048
  2. HYDROCHLOROTHIAZIDE [Concomitant]
  3. PRAVASTATIN [Concomitant]
  4. ANTIANXIETY OR NERVE MEDICATION [Concomitant]
  5. VITAMIN D [Concomitant]
  6. MUCINEX D [Concomitant]

REACTIONS (5)
  - ANXIETY [None]
  - BLOOD PRESSURE INCREASED [None]
  - BRONCHIAL SECRETION RETENTION [None]
  - DRUG INEFFECTIVE [None]
  - BRONCHITIS CHRONIC [None]
